FAERS Safety Report 4486690-6 (Version None)
Quarter: 2004Q4

REPORT INFORMATION
  Report Type: 
  Country: None (occurrence: None)
  Receive Date: 20041021
  Receipt Date: 20041006
  Transmission Date: 20050328
  Serious: No
  Sender: FDA-Public Use
  Company Number: 2004SE04993

PATIENT
  Age: 70 Year
  Sex: Male
  Weight: 57 kg

DRUGS (8)
  1. BLOPRESS [Suspect]
     Indication: HYPERTENSION
     Dosage: 4 MG DAILY PO
     Route: 048
     Dates: start: 20030404
  2. PENFILL R [Suspect]
     Indication: DIABETES MELLITUS NON-INSULIN-DEPENDENT
     Dosage: 18 U DAILY SQ
     Route: 058
     Dates: start: 20020701
  3. PENFILL R [Suspect]
     Indication: DIABETES MELLITUS NON-INSULIN-DEPENDENT
     Dosage: 16 U DAILY SQ
     Route: 058
  4. ACARBOSE [Concomitant]
  5. NICORANDIL [Concomitant]
  6. ACETYLSALICYLIC ACID [Concomitant]
  7. PHENYTOIN [Concomitant]
  8. FERROUS CITRATE [Concomitant]

REACTIONS (6)
  - CEREBRAL INFARCTION [None]
  - GLYCOSYLATED HAEMOGLOBIN INCREASED [None]
  - HYPERTENSION [None]
  - HYPOGLYCAEMIA [None]
  - INSULIN-REQUIRING TYPE II DIABETES MELLITUS [None]
  - MYOCARDIAL ISCHAEMIA [None]
